FAERS Safety Report 22063942 (Version 4)
Quarter: 2023Q4

REPORT INFORMATION
  Report Type: Spontaneous
  Country: MY (occurrence: MY)
  Receive Date: 20230306
  Receipt Date: 20231220
  Transmission Date: 20240110
  Serious: Yes (Other)
  Sender: FDA-Public Use
  Company Number: MY-AMERICAN REGENT INC-2023000526

PATIENT
  Age: 45 Year
  Sex: Female
  Weight: 65.3 kg

DRUGS (5)
  1. FERINJECT [Suspect]
     Active Substance: FERRIC CARBOXYMALTOSE
     Indication: Heavy menstrual bleeding
     Dosage: 20 ML (SINGLE DOSE) (1000 MG,1 IN 1 TOTAL)
     Dates: start: 20230222, end: 20230222
  2. FERINJECT [Suspect]
     Active Substance: FERRIC CARBOXYMALTOSE
     Indication: Iron deficiency anaemia
  3. FERINJECT [Suspect]
     Active Substance: FERRIC CARBOXYMALTOSE
     Indication: Iron deficiency
  4. NORETHINDRONE [Concomitant]
     Active Substance: NORETHINDRONE
     Indication: Heavy menstrual bleeding
     Dosage: 10 MG (5 MG, 2 IN 1 D)
     Route: 048
     Dates: start: 20230222
  5. TRIPTORELIN ACETATE [Concomitant]
     Active Substance: TRIPTORELIN ACETATE
     Indication: Heavy menstrual bleeding
     Dosage: END DATE: X1 STAT
     Route: 030
     Dates: start: 20230222, end: 20230222

REACTIONS (2)
  - Skin hyperpigmentation [Recovered/Resolved]
  - Urticaria [Recovered/Resolved]

NARRATIVE: CASE EVENT DATE: 20230222
